FAERS Safety Report 22323598 (Version 1)
Quarter: 2023Q2

REPORT INFORMATION
  Report Type: Report from Study
  Country: JP (occurrence: JP)
  Receive Date: 20230516
  Receipt Date: 20230516
  Transmission Date: 20230722
  Serious: Yes (Other)
  Sender: FDA-Public Use
  Company Number: JP-JNJFOC-20220844348

PATIENT
  Age: 73 Year
  Sex: Female

DRUGS (12)
  1. PALIPERIDONE PALMITATE [Suspect]
     Active Substance: PALIPERIDONE PALMITATE
     Indication: Schizophrenia
     Dosage: RIGHT DELTOID MUSCLE
     Route: 030
     Dates: start: 20210821, end: 20210821
  2. PALIPERIDONE PALMITATE [Suspect]
     Active Substance: PALIPERIDONE PALMITATE
     Indication: Schizophrenia
     Dosage: LEFT DELTOID MUSCLE
     Route: 030
     Dates: start: 20211113, end: 20211113
  3. PALIPERIDONE PALMITATE [Suspect]
     Active Substance: PALIPERIDONE PALMITATE
     Indication: Schizophrenia
     Dosage: RIGHT DELTOID MUSCLE
     Route: 030
     Dates: start: 20220212, end: 20220212
  4. PALIPERIDONE PALMITATE [Suspect]
     Active Substance: PALIPERIDONE PALMITATE
     Indication: Schizophrenia
     Dosage: LEFT DELTOID MUSCLE
     Route: 030
     Dates: start: 20220514, end: 20220514
  5. PALIPERIDONE PALMITATE [Suspect]
     Active Substance: PALIPERIDONE PALMITATE
     Indication: Schizophrenia
     Dosage: RIGHT DELTOID MUSCLE
     Route: 030
     Dates: start: 20220813, end: 20220813
  6. PALIPERIDONE PALMITATE [Concomitant]
     Active Substance: PALIPERIDONE PALMITATE
     Indication: Schizophrenia
     Route: 030
     Dates: start: 20210403, end: 20210403
  7. PALIPERIDONE PALMITATE [Concomitant]
     Active Substance: PALIPERIDONE PALMITATE
     Route: 030
     Dates: start: 20210501, end: 20210501
  8. PALIPERIDONE PALMITATE [Concomitant]
     Active Substance: PALIPERIDONE PALMITATE
     Route: 030
     Dates: start: 20210529, end: 20210529
  9. PALIPERIDONE PALMITATE [Concomitant]
     Active Substance: PALIPERIDONE PALMITATE
     Route: 030
     Dates: start: 20210626, end: 20210626
  10. PALIPERIDONE PALMITATE [Concomitant]
     Active Substance: PALIPERIDONE PALMITATE
     Route: 030
     Dates: start: 20210724, end: 20210724
  11. INVEGA [Concomitant]
     Active Substance: PALIPERIDONE
     Indication: Schizophrenia
     Route: 048
     Dates: start: 20221113, end: 20221216
  12. TRIHEXYPHENIDYL HYDROCHLORIDE [Concomitant]
     Active Substance: TRIHEXYPHENIDYL HYDROCHLORIDE
     Indication: Dyskinesia
     Route: 048

REACTIONS (1)
  - Normal pressure hydrocephalus [Unknown]

NARRATIVE: CASE EVENT DATE: 20221112
